FAERS Safety Report 22135708 (Version 1)
Quarter: 2023Q1

REPORT INFORMATION
  Report Type: Report from Study
  Country: IE (occurrence: IE)
  Receive Date: 20230324
  Receipt Date: 20230324
  Transmission Date: 20230417
  Serious: Yes (Hospitalization)
  Sender: FDA-Public Use
  Company Number: IE-AstraZeneca-2023A069005

PATIENT
  Age: 376 Day
  Sex: Male

DRUGS (4)
  1. SYNAGIS [Suspect]
     Active Substance: PALIVIZUMAB
     Indication: Ventriculo-peritoneal shunt
     Dosage: FREQUENCY ONCE EVERY 4 WEEKS
     Route: 030
     Dates: start: 20221020
  2. SYNAGIS [Suspect]
     Active Substance: PALIVIZUMAB
     Dosage: FREQUENCY ONCE EVERY 4 WEEKS
     Route: 030
     Dates: start: 202202
  3. SYNAGIS [Suspect]
     Active Substance: PALIVIZUMAB
     Dosage: FREQUENCY ONCE EVERY 4 WEEKS
     Route: 030
     Dates: start: 20230209
  4. IRON [Concomitant]
     Active Substance: IRON
     Indication: Product used for unknown indication
     Dosage: FREQUENCY ONCE DAILY
     Route: 050

REACTIONS (1)
  - Vomiting [Not Recovered/Not Resolved]

NARRATIVE: CASE EVENT DATE: 20230315
